FAERS Safety Report 4547874-1 (Version None)
Quarter: 2004Q4

REPORT INFORMATION
  Report Type: 
  Country: None (occurrence: None)
  Receive Date: 20041227
  Receipt Date: 20041019
  Transmission Date: 20050328
  Serious: No
  Sender: FDA-Public Use
  Company Number: 04P-163-0277970-00

PATIENT
  Age: 76 Year
  Sex: Female
  Weight: 72.5755 kg

DRUGS (10)
  1. HUMIRA [Suspect]
     Indication: RHEUMATOID ARTHRITIS
     Dosage: 40 MG, 1 IN 2 WK, SUBCUTANEOUS
     Route: 058
     Dates: start: 20030101, end: 20040901
  2. FLUVASTATIN SODIUM [Concomitant]
  3. FOLIC ACID [Concomitant]
  4. DYAZIDE [Concomitant]
  5. PREDNISONE [Concomitant]
  6. METHOTREXATE SODIUM [Concomitant]
  7. ACETYLSALICYLIC ACID SRT [Concomitant]
  8. MULTI-VITAMINS [Concomitant]
  9. CALCIUM GLUCONATE [Concomitant]
  10. BENAZEPRIL HCL [Concomitant]

REACTIONS (1)
  - KIDNEY INFECTION [None]
